FAERS Safety Report 8168403-X (Version None)
Quarter: 2012Q1

REPORT INFORMATION
  Report Type: 
  Country: None (occurrence: None)
  Receive Date: 20120227
  Receipt Date: 20120221
  Transmission Date: 20120608
  Serious: Yes (Hospitalization)
  Sender: FDA-Public Use
  Company Number: IT-MERCK-1202ITA00044

PATIENT
  Age: 89 Year
  Sex: Male

DRUGS (6)
  1. HERBS (UNSPECIFIED) [Concomitant]
     Indication: HYPERCHOLESTEROLAEMIA
     Route: 065
  2. ZOCOR [Suspect]
     Indication: ISCHAEMIC CARDIOMYOPATHY
     Route: 048
     Dates: start: 20120101, end: 20120126
  3. LORAZEPAM [Concomitant]
     Route: 048
  4. TICLOPIDINE HYDROCHLORIDE [Concomitant]
     Route: 048
  5. METOPROLOL TARTRATE [Concomitant]
     Route: 048
  6. RAMIPRIL [Concomitant]
     Route: 048

REACTIONS (2)
  - BLOOD CREATINE PHOSPHOKINASE INCREASED [None]
  - HYPERTRANSAMINASAEMIA [None]
